FAERS Safety Report 17115395 (Version 2)
Quarter: 2019Q4

REPORT INFORMATION
  Report Type: Spontaneous
  Country: PL (occurrence: PL)
  Receive Date: 20191205
  Receipt Date: 20191216
  Transmission Date: 20200122
  Serious: Yes (Death, Other)
  Sender: FDA-Public Use
  Company Number: PL-AMGEN-POLSP2019199526

PATIENT

DRUGS (1)
  1. BLINCYTO [Suspect]
     Active Substance: BLINATUMOMAB
     Indication: ACUTE LYMPHOCYTIC LEUKAEMIA RECURRENT
     Dosage: 15 MICROGRAM/SQ. METER, QD, FOR 28 DAYS OR 23-25 DAYS
     Route: 065

REACTIONS (5)
  - Nausea [Unknown]
  - Death [Fatal]
  - Pyrexia [Unknown]
  - Acute lymphocytic leukaemia recurrent [Unknown]
  - Vomiting [Unknown]
